FAERS Safety Report 14775447 (Version 1)
Quarter: 2018Q2

REPORT INFORMATION
  Report Type: Spontaneous
  Country: IT (occurrence: IT)
  Receive Date: 20180418
  Receipt Date: 20180418
  Transmission Date: 20180711
  Serious: Yes (Hospitalization)
  Sender: FDA-Public Use
  Company Number: IT-MYLANLABS-2018M1023885

PATIENT
  Age: 44 Year
  Sex: Female

DRUGS (3)
  1. INDAPAMIDE. [Suspect]
     Active Substance: INDAPAMIDE
     Indication: ESSENTIAL HYPERTENSION
     Route: 065
  2. PERINDOPRIL [Concomitant]
     Active Substance: PERINDOPRIL
     Indication: ESSENTIAL HYPERTENSION
     Route: 065
  3. LERCANIDIPINE [Concomitant]
     Active Substance: LERCANIDIPINE
     Indication: ESSENTIAL HYPERTENSION
     Route: 065

REACTIONS (1)
  - Ventricular tachycardia [Recovered/Resolved]
